FAERS Safety Report 6655147-6 (Version None)
Quarter: 2010Q1

REPORT INFORMATION
  Report Type: 
  Country: None (occurrence: None)
  Receive Date: 20100329
  Receipt Date: 20100318
  Transmission Date: 20100710
  Serious: Yes (Disabling)
  Sender: FDA-Public Use
  Company Number: DE-NAPPMUNDI-DEU-2009-0005509

PATIENT
  Sex: Female

DRUGS (1)
  1. OXYGESIC [Suspect]
     Indication: PAIN
     Dosage: 50 MG, TID
     Dates: start: 20030101

REACTIONS (3)
  - FACIAL PALSY [None]
  - HERPES ZOSTER [None]
  - TOOTH INFECTION [None]
